FAERS Safety Report 7614062-1 (Version None)
Quarter: 2011Q3

REPORT INFORMATION
  Report Type: 
  Country: None (occurrence: None)
  Receive Date: 20110708
  Receipt Date: 20110701
  Transmission Date: 20111222
  Serious: Yes (Hospitalization)
  Sender: FDA-Public Use
  Company Number: 2011SP013052

PATIENT
  Age: 68 Year
  Sex: Female

DRUGS (13)
  1. TRIAZOLAM [Suspect]
     Indication: BIPOLAR I DISORDER
     Dosage: 0.25 MG; PO
     Route: 048
     Dates: start: 20101209, end: 20101224
  2. SULPIRIDE (SULPIRIDE) [Suspect]
     Indication: BIPOLAR I DISORDER
     Dosage: 50 MG; PO
     Route: 048
     Dates: start: 20101125, end: 20101224
  3. SENNOSIDE (SENNOSIDE A+B CALCIUM) [Suspect]
     Indication: CONSTIPATION
     Dosage: 12 MG; PO
     Route: 048
     Dates: start: 20101209, end: 20101224
  4. NITRAZEPAM [Interacting]
  5. ZYPREXA [Suspect]
     Indication: BIPOLAR I DISORDER
     Dosage: 1.25 MG; PO
     Route: 048
     Dates: start: 20070908
  6. MAGNESIUM SULFATE [Concomitant]
  7. ZOPICLONE [Concomitant]
  8. BI SAIFROL (PRAMIPEXOLE HYDROCHLORIDE HYDRATE) [Concomitant]
  9. SEROQUEL [Suspect]
     Indication: BIPOLAR I DISORDER
     Dosage: 50 MG; PO
     Route: 048
     Dates: start: 20101209, end: 20101224
  10. LITI0MAL [Concomitant]
  11. REMERON [Suspect]
     Indication: BIPOLAR I DISORDER
     Dosage: 15 MG;QD;PO; 30 MG;QD;PO
     Route: 048
     Dates: start: 20101125, end: 20101208
  12. REMERON [Suspect]
     Indication: BIPOLAR I DISORDER
     Dosage: 15 MG;QD;PO; 30 MG;QD;PO
     Route: 048
     Dates: start: 20101209, end: 20101225
  13. LORAZEPAM [Concomitant]

REACTIONS (7)
  - FAECAL INCONTINENCE [None]
  - INSOMNIA [None]
  - DEPRESSION [None]
  - DECREASED APPETITE [None]
  - FLUID INTAKE REDUCED [None]
  - CONSTIPATION [None]
  - CONDITION AGGRAVATED [None]
